FAERS Safety Report 5587695-4 (Version None)
Quarter: 2007Q4

REPORT INFORMATION
  Report Type: 
  Country: None (occurrence: None)
  Receive Date: 20071206
  Receipt Date: 20071019
  Transmission Date: 20080405
  Serious: Yes (Other)
  Sender: FDA-Public Use
  Company Number: 42010

PATIENT
  Age: 50 Year
  Sex: Male

DRUGS (2)
  1. METHOTREXATE [Suspect]
     Indication: ACUTE LYMPHOCYTIC LEUKAEMIA
     Dosage: 6500MG/IV (2HR INFUSION)
     Route: 042
     Dates: start: 20071009
  2. METHOTREXATE [Suspect]

REACTIONS (1)
  - OVERDOSE [None]
